FAERS Safety Report 12063437 (Version 1)
Quarter: 2016Q1

REPORT INFORMATION
  Report Type: Spontaneous
  Country: None (occurrence: US)
  Receive Date: 20160210
  Receipt Date: 20160210
  Transmission Date: 20160526
  Serious: No
  Sender: FDA-Public Use
  Company Number: US-ALLERGAN-1501847US

PATIENT
  Age: 42 Year
  Sex: Female

DRUGS (1)
  1. BOTOX [Suspect]
     Active Substance: ONABOTULINUMTOXINA
     Indication: PSORIASIS
     Dosage: UNK, SINGLE
     Route: 030
     Dates: start: 20141203, end: 20141203

REACTIONS (4)
  - Off label use [Unknown]
  - Eyelid sensory disorder [Unknown]
  - Periorbital oedema [Unknown]
  - Weight decreased [Unknown]

NARRATIVE: CASE EVENT DATE: 201501
